FAERS Safety Report 4865514-9 (Version None)
Quarter: 2005Q4

REPORT INFORMATION
  Report Type: 
  Country: None (occurrence: None)
  Receive Date: 20051223
  Receipt Date: 20010126
  Transmission Date: 20060501
  Serious: Yes (Hospitalization)
  Sender: FDA-Public Use
  Company Number: US-ROCHE-253385

PATIENT
  Age: 53 Year
  Sex: Male
  Weight: 82.7 kg

DRUGS (39)
  1. DACLIZUMAB [Suspect]
     Route: 042
     Dates: start: 20001214, end: 20010129
  2. MYCOPHENOLATE MOFETIL [Suspect]
     Route: 048
     Dates: start: 20001215
  3. NEORAL [Suspect]
     Route: 048
     Dates: start: 20001215
  4. NEORAL [Suspect]
     Route: 048
     Dates: start: 20001219, end: 20001220
  5. NEORAL [Suspect]
     Route: 048
     Dates: start: 20010116
  6. PREDNISOLONE [Suspect]
     Route: 048
     Dates: start: 20001215, end: 20001215
  7. PREDNISOLONE [Suspect]
     Route: 048
     Dates: start: 20001219, end: 20001219
  8. PREDNISOLONE [Suspect]
     Route: 048
     Dates: start: 20001220, end: 20001220
  9. PREDNISOLONE [Suspect]
     Route: 048
     Dates: start: 20010104
  10. PREDNISOLONE [Suspect]
     Route: 048
  11. ASPIRIN [Concomitant]
     Dates: start: 20001216
  12. ZANTAC [Concomitant]
     Dates: start: 20001214
  13. HMG-COA REDUCTASE INHIBITOR [Concomitant]
  14. CACO3 [Concomitant]
     Dates: start: 20001216, end: 20010208
  15. MAGNESIUM OXIDE [Concomitant]
     Dates: start: 20001215
  16. SOLU-MEDROL [Concomitant]
     Route: 040
     Dates: start: 20001215, end: 20001215
  17. NORVASC [Concomitant]
     Dates: start: 20001217
  18. BACTRIM [Concomitant]
     Dates: start: 20001215
  19. VANCOMYCIN [Concomitant]
     Dates: start: 20001215, end: 20001230
  20. GANCICLOVIR [Concomitant]
     Dates: start: 20001214
  21. CYTOVENE [Concomitant]
     Dates: start: 20001228
  22. PRAVACHOL [Concomitant]
     Dates: start: 20001219
  23. TYLOX [Concomitant]
     Dosage: PRN
     Dates: start: 20001215
  24. COLACE [Concomitant]
     Dates: start: 20010113
  25. NYSTATIN [Concomitant]
     Dates: start: 20001215
  26. HYDRALAZINE [Concomitant]
     Dates: start: 20001216, end: 20010110
  27. TERBUTALINE [Concomitant]
     Dates: start: 20001217, end: 20010110
  28. PROCAN SR [Concomitant]
     Indication: ATRIAL FIBRILLATION
     Dates: start: 20001226
  29. LEUCOVORIN CALCIUM [Concomitant]
     Dates: start: 20010104
  30. FESO4 [Concomitant]
     Dates: start: 20010106
  31. PYRIMETHAMINE TAB [Concomitant]
     Dates: start: 20010115
  32. DOPAMINE [Concomitant]
     Dates: start: 20010107, end: 20010206
  33. MILRINONE [Concomitant]
     Dates: start: 20001214, end: 20001218
  34. LASIX [Concomitant]
     Dates: start: 20001218
  35. MAGNESIUM SULFATE [Concomitant]
     Dates: start: 20001214, end: 20001215
  36. ALLOPURINOL [Concomitant]
     Dates: start: 20010413
  37. CARDIZEM CD [Concomitant]
     Dates: start: 20010208
  38. KLONOPIN [Concomitant]
     Dates: start: 20010614
  39. FOSAMAX [Concomitant]
     Dates: start: 20010212

REACTIONS (10)
  - ATRIAL FIBRILLATION [None]
  - BASAL CELL CARCINOMA [None]
  - BLOOD CHLORIDE DECREASED [None]
  - DEHYDRATION [None]
  - FLUID OVERLOAD [None]
  - GASTROENTERITIS VIRAL [None]
  - PITTING OEDEMA [None]
  - POST PROCEDURAL COMPLICATION [None]
  - RENAL FAILURE [None]
  - WEIGHT INCREASED [None]
